FAERS Safety Report 15207293 (Version 2)
Quarter: 2018Q3

REPORT INFORMATION
  Report Type: Spontaneous
  Country: CH (occurrence: CH)
  Receive Date: 20180727
  Receipt Date: 20180731
  Transmission Date: 20181010
  Serious: Yes (Hospitalization)
  Sender: FDA-Public Use
  Company Number: PHHY2018CH050469

PATIENT
  Age: 53 Year
  Sex: Male

DRUGS (138)
  1. FLUDARABINE [Suspect]
     Active Substance: FLUDARABINE PHOSPHATE
     Indication: METASTATIC MALIGNANT MELANOMA
     Dosage: 59.5 MG, UNK
     Route: 042
     Dates: start: 20180605, end: 20180605
  2. FLUDARABINE [Suspect]
     Active Substance: FLUDARABINE PHOSPHATE
     Dosage: 59.5 MG, UNK
     Route: 042
     Dates: start: 20180608, end: 20180608
  3. PEMBROLIZUMAB. [Suspect]
     Active Substance: PEMBROLIZUMAB
     Indication: METASTATIC MALIGNANT MELANOMA
     Dosage: UNK
     Route: 065
     Dates: start: 201701, end: 201705
  4. INTERLEUKIN?2 [Suspect]
     Active Substance: ALDESLEUKIN
     Indication: METASTATIC MALIGNANT MELANOMA
     Dosage: 82.8 OT, UNK (10 TO 6 UI)
     Route: 042
     Dates: start: 20180612, end: 20180612
  5. FUROSEMIDE. [Concomitant]
     Active Substance: FUROSEMIDE
     Dosage: 40 MG, QD
     Route: 042
     Dates: start: 20180611, end: 20180612
  6. CALCIUM GLUCONATE. [Concomitant]
     Active Substance: CALCIUM GLUCONATE
     Dosage: 2.25 MMOL, QD
     Route: 042
     Dates: start: 20180619, end: 20180619
  7. ACETAMINOPHEN. [Concomitant]
     Active Substance: ACETAMINOPHEN
     Dosage: 500 MG, QD
     Route: 048
     Dates: start: 20180618, end: 20180619
  8. MORPHINE [Concomitant]
     Active Substance: MORPHINE
     Dosage: 8 MG/H, BID
     Route: 042
     Dates: start: 20180606, end: 20180606
  9. MORPHINE [Concomitant]
     Active Substance: MORPHINE
     Dosage: 5 MG, QD
     Route: 058
     Dates: start: 20180613, end: 20180613
  10. MORPHINE [Concomitant]
     Active Substance: MORPHINE
     Dosage: 9 MG, QID
     Route: 058
     Dates: start: 20180703, end: 20180704
  11. LORAZEPAM. [Concomitant]
     Active Substance: LORAZEPAM
     Dosage: 1 MG, QD
     Route: 048
     Dates: start: 20180617, end: 20180617
  12. CEFEPIME [Concomitant]
     Active Substance: CEFEPIME HYDROCHLORIDE
     Dosage: 2 G, TID
     Route: 042
     Dates: start: 20180618, end: 20180623
  13. PREGABALIN. [Concomitant]
     Active Substance: PREGABALIN
     Dosage: 75 MG, QD
     Route: 048
     Dates: start: 20180701, end: 20180701
  14. MACROGOL [Concomitant]
     Active Substance: POLYETHYLENE GLYCOLS
     Dosage: 1 U, BID
     Route: 048
     Dates: start: 20180706, end: 20180710
  15. MACROGOL [Concomitant]
     Active Substance: POLYETHYLENE GLYCOLS
     Dosage: 1 U, QD
     Route: 048
     Dates: start: 20180711, end: 20180711
  16. MACROGOL [Concomitant]
     Active Substance: POLYETHYLENE GLYCOLS
     Dosage: 1 U, BID
     Route: 048
     Dates: start: 20180716
  17. SODIUM PICOSULFATE [Concomitant]
     Active Substance: SODIUM PICOSULFATE
     Dosage: 15 DRP, QD
     Route: 048
     Dates: start: 20180709
  18. VITAMIN B1 [Concomitant]
     Active Substance: THIAMINE HYDROCHLORIDE
     Indication: PRODUCT USED FOR UNKNOWN INDICATION
     Dosage: 100 MG, QD
     Route: 048
     Dates: start: 20180704
  19. MESNA. [Concomitant]
     Active Substance: MESNA
     Indication: PRODUCT USED FOR UNKNOWN INDICATION
     Dosage: 2760 MG, TID
     Route: 042
     Dates: start: 20180605, end: 20180606
  20. TELMISARTAN. [Concomitant]
     Active Substance: TELMISARTAN
     Indication: PRODUCT USED FOR UNKNOWN INDICATION
     Dosage: 80 MG, QD
     Route: 048
     Dates: start: 20000101, end: 20180605
  21. POTASSIUM CHLORIDE. [Concomitant]
     Active Substance: POTASSIUM CHLORIDE
     Indication: PRODUCT USED FOR UNKNOWN INDICATION
     Dosage: 10 MMOL, BID
     Route: 042
     Dates: start: 20180610, end: 20180610
  22. CERNEVIT [Concomitant]
     Active Substance: VITAMINS
     Indication: PRODUCT USED FOR UNKNOWN INDICATION
     Dosage: 1 DF, QD
     Route: 050
     Dates: start: 20180615, end: 20180622
  23. FOLIC ACID. [Concomitant]
     Active Substance: FOLIC ACID
     Dosage: 5 MG, QD
     Route: 048
     Dates: start: 20180714, end: 20180716
  24. ENDOXAN [Suspect]
     Active Substance: CYCLOPHOSPHAMIDE
     Indication: METASTATIC MALIGNANT MELANOMA
     Dosage: 6900 MG, UNK
     Route: 042
     Dates: start: 20180605, end: 20180605
  25. ENDOXAN [Suspect]
     Active Substance: CYCLOPHOSPHAMIDE
     Dosage: 6900 MG, UNK
     Route: 042
     Dates: start: 20180606, end: 20180606
  26. IPILIMUMAB [Suspect]
     Active Substance: IPILIMUMAB
     Indication: METASTATIC MALIGNANT MELANOMA
     Dosage: UNK
     Route: 065
     Dates: start: 20170731, end: 20171002
  27. FUROSEMIDE. [Concomitant]
     Active Substance: FUROSEMIDE
     Dosage: 20 MG, QD
     Route: 042
     Dates: start: 20180616, end: 20180616
  28. CALCIUM GLUCONATE. [Concomitant]
     Active Substance: CALCIUM GLUCONATE
     Indication: PRODUCT USED FOR UNKNOWN INDICATION
     Dosage: 2.25 MMOL, BID
     Route: 042
     Dates: start: 20180605, end: 20180605
  29. CALCIUM [Concomitant]
     Active Substance: CALCIUM
     Indication: PRODUCT USED FOR UNKNOWN INDICATION
     Dosage: 500 MG, QD
     Route: 048
     Dates: start: 20180609, end: 20180609
  30. ACETAMINOPHEN. [Concomitant]
     Active Substance: ACETAMINOPHEN
     Dosage: 1000 MG, QD
     Route: 048
     Dates: start: 20180617, end: 20180617
  31. MORPHINE [Concomitant]
     Active Substance: MORPHINE
     Dosage: 8 MG/H, UNK (EVERY 4 HOURS)
     Route: 042
     Dates: start: 20180605, end: 20180605
  32. MORPHINE [Concomitant]
     Active Substance: MORPHINE
     Dosage: 9 MG, QID
     Route: 058
     Dates: start: 20180709, end: 20180709
  33. LORAZEPAM. [Concomitant]
     Active Substance: LORAZEPAM
     Dosage: 1 MG, QD
     Route: 048
     Dates: start: 20180620, end: 20180620
  34. TORASEMIDE [Concomitant]
     Active Substance: TORSEMIDE
     Indication: PRODUCT USED FOR UNKNOWN INDICATION
     Dosage: 10 MG, QD
     Route: 048
     Dates: start: 20180623, end: 20180623
  35. METOCLOPRAMIDE. [Concomitant]
     Active Substance: METOCLOPRAMIDE
     Indication: PRODUCT USED FOR UNKNOWN INDICATION
     Dosage: 10 MG, QD
     Route: 042
     Dates: start: 20180625, end: 20180626
  36. PREGABALIN. [Concomitant]
     Active Substance: PREGABALIN
     Indication: PRODUCT USED FOR UNKNOWN INDICATION
     Dosage: 50 MG, PRN
     Route: 048
     Dates: start: 20150330
  37. PREGABALIN. [Concomitant]
     Active Substance: PREGABALIN
     Dosage: 75 MG, BID
     Route: 048
     Dates: start: 20180702, end: 20180704
  38. MACROGOL [Concomitant]
     Active Substance: POLYETHYLENE GLYCOLS
     Indication: PRODUCT USED FOR UNKNOWN INDICATION
     Dosage: 1 U, QD
     Route: 048
     Dates: start: 20180701, end: 20180701
  39. MACROGOL [Concomitant]
     Active Substance: POLYETHYLENE GLYCOLS
     Dosage: 1 U, BID
     Route: 048
     Dates: start: 20180702
  40. SODIUM PICOSULFATE [Concomitant]
     Active Substance: SODIUM PICOSULFATE
     Indication: PRODUCT USED FOR UNKNOWN INDICATION
     Dosage: 10 GTT, QD
     Route: 048
     Dates: start: 20180701, end: 20180704
  41. ENOXAPARIN SODIUM. [Concomitant]
     Active Substance: ENOXAPARIN SODIUM
     Indication: PRODUCT USED FOR UNKNOWN INDICATION
     Dosage: 40 MG, QD
     Route: 058
     Dates: start: 20180701, end: 20180709
  42. PHOSPHATE [Concomitant]
     Active Substance: UNSPECIFIED INGREDIENT
     Dosage: 500 MG, QD
     Route: 048
     Dates: start: 20080608, end: 20180611
  43. FLUCLOXACILLIN [Concomitant]
     Active Substance: FLUCLOXACILLIN
     Indication: PRODUCT USED FOR UNKNOWN INDICATION
     Dosage: 2000 MG, TID
     Route: 042
     Dates: start: 20180609, end: 20180609
  44. FLUCLOXACILLIN [Concomitant]
     Active Substance: FLUCLOXACILLIN
     Dosage: 2000 MG, TID
     Route: 042
     Dates: start: 20180612, end: 20180613
  45. LOPERAMIDE [Concomitant]
     Active Substance: LOPERAMIDE
     Indication: PRODUCT USED FOR UNKNOWN INDICATION
     Dosage: 2 MG, QD
     Route: 048
     Dates: start: 20180611, end: 20180611
  46. PEGFILGRASTIM [Concomitant]
     Active Substance: PEGFILGRASTIM
     Indication: PRODUCT USED FOR UNKNOWN INDICATION
     Dosage: 6 UNK, UNK
     Route: 058
     Dates: start: 20180612, end: 20180612
  47. FOLIC ACID. [Concomitant]
     Active Substance: FOLIC ACID
     Indication: PRODUCT USED FOR UNKNOWN INDICATION
     Dosage: 5 MG, QD
     Route: 048
     Dates: start: 20180703, end: 20180712
  48. DOSPIR [Concomitant]
     Active Substance: ALBUTEROL SULFATE\IPRATROPIUM BROMIDE
     Dosage: 2 OT, QD (PUFF)
     Route: 055
     Dates: start: 20180613, end: 20180613
  49. POTASSIUM PHOSPHATE [Concomitant]
     Active Substance: POTASSIUM PHOSPHATE
     Indication: PRODUCT USED FOR UNKNOWN INDICATION
     Dosage: 20 MMOL, QD
     Route: 042
     Dates: start: 20180604, end: 20180604
  50. FUROSEMIDE. [Concomitant]
     Active Substance: FUROSEMIDE
     Dosage: 40 MG/H, TID
     Route: 042
     Dates: start: 20180622, end: 20180622
  51. CALCIUM GLUCONATE. [Concomitant]
     Active Substance: CALCIUM GLUCONATE
     Dosage: 2.25 MMOL, TID
     Route: 042
     Dates: start: 20080611, end: 20180618
  52. CALCIUM [Concomitant]
     Active Substance: CALCIUM
     Dosage: 1 U, QD
     Route: 048
     Dates: start: 20180706, end: 20180713
  53. ACETAMINOPHEN. [Concomitant]
     Active Substance: ACETAMINOPHEN
     Dosage: 1000 MG, QD
     Route: 048
     Dates: start: 20180614, end: 20180614
  54. ACETAMINOPHEN. [Concomitant]
     Active Substance: ACETAMINOPHEN
     Dosage: 1000 MG, QD
     Route: 048
     Dates: start: 20180619, end: 20180620
  55. MORPHINE [Concomitant]
     Active Substance: MORPHINE
     Dosage: 8 MG, QD
     Route: 048
     Dates: start: 20180613, end: 20180614
  56. MORPHINE [Concomitant]
     Active Substance: MORPHINE
     Dosage: 8 MG, QD
     Route: 048
     Dates: start: 20180625, end: 20180625
  57. MORPHINE [Concomitant]
     Active Substance: MORPHINE
     Dosage: 40 MG, BID
     Route: 048
     Dates: start: 20180714
  58. LORAZEPAM. [Concomitant]
     Active Substance: LORAZEPAM
     Indication: PRODUCT USED FOR UNKNOWN INDICATION
     Dosage: 1 MG, QD
     Route: 048
     Dates: start: 20180610, end: 20180610
  59. VALACICLOVIR [Concomitant]
     Active Substance: VALACYCLOVIR HYDROCHLORIDE
     Dosage: 500 MG, BID
     Route: 048
     Dates: start: 20180702, end: 20180704
  60. SODIUM PICOSULFATE [Concomitant]
     Active Substance: SODIUM PICOSULFATE
     Dosage: 10 GTT, QD
     Route: 048
     Dates: start: 20180706, end: 20180708
  61. ROSUVASTATIN. [Concomitant]
     Active Substance: ROSUVASTATIN
     Indication: PRODUCT USED FOR UNKNOWN INDICATION
     Dosage: 10 MG, QD
     Route: 048
     Dates: start: 20000101, end: 20180604
  62. ESOMEPRAZOLE [Concomitant]
     Active Substance: ESOMEPRAZOLE
     Indication: PRODUCT USED FOR UNKNOWN INDICATION
     Dosage: 40 MG, BID
     Route: 042
     Dates: start: 20180604, end: 20180604
  63. ESOMEPRAZOLE [Concomitant]
     Active Substance: ESOMEPRAZOLE
     Dosage: 40 MG, BID
     Route: 042
     Dates: start: 20180605, end: 20180605
  64. FUROSEMIDE. [Concomitant]
     Active Substance: FUROSEMIDE
     Dosage: 40 MG, QD
     Route: 042
     Dates: start: 20180618, end: 20180619
  65. CALCIUM [Concomitant]
     Active Substance: CALCIUM
     Dosage: 500 MG, TID
     Route: 048
     Dates: start: 20180610, end: 20180610
  66. ACETAMINOPHEN. [Concomitant]
     Active Substance: ACETAMINOPHEN
     Dosage: 1000 MG, QD
     Route: 048
     Dates: start: 20180618, end: 20180619
  67. ACETAMINOPHEN. [Concomitant]
     Active Substance: ACETAMINOPHEN
     Dosage: 1000 MG, QD
     Route: 048
     Dates: start: 20180622, end: 20180622
  68. ACETAMINOPHEN. [Concomitant]
     Active Substance: ACETAMINOPHEN
     Dosage: 500 MG, PRN
     Route: 048
     Dates: start: 20180627
  69. MORPHINE [Concomitant]
     Active Substance: MORPHINE
     Indication: PRODUCT USED FOR UNKNOWN INDICATION
     Dosage: 4 MG, QD
     Route: 048
     Dates: start: 20180604, end: 20180604
  70. MORPHINE [Concomitant]
     Active Substance: MORPHINE
     Dosage: 8 MG, TID
     Route: 042
     Dates: start: 20180604, end: 20180604
  71. MORPHINE [Concomitant]
     Active Substance: MORPHINE
     Dosage: 9 MG, 5QD
     Route: 058
     Dates: start: 20180701, end: 20180701
  72. POTASSIUM [Concomitant]
     Active Substance: POTASSIUM
     Dosage: 1 DF, TID
     Route: 048
     Dates: start: 20180612, end: 20180616
  73. METOCLOPRAMIDE. [Concomitant]
     Active Substance: METOCLOPRAMIDE
     Dosage: 10 MG, PRN
     Route: 048
     Dates: start: 20180627, end: 20180730
  74. PREGABALIN. [Concomitant]
     Active Substance: PREGABALIN
     Dosage: 100 MG, BID
     Route: 048
     Dates: start: 20180705
  75. PREGABALIN. [Concomitant]
     Active Substance: PREGABALIN
     Dosage: 100 MG, BID
     Route: 048
     Dates: start: 20180714
  76. PHOSPHATE [Concomitant]
     Active Substance: UNSPECIFIED INGREDIENT
     Indication: PRODUCT USED FOR UNKNOWN INDICATION
     Dosage: 3 MMOL, QD
     Route: 048
     Dates: start: 20180604, end: 20180604
  77. SALBUTAMOL [Concomitant]
     Active Substance: ALBUTEROL
     Indication: PRODUCT USED FOR UNKNOWN INDICATION
     Dosage: 5 MG, QD
     Route: 055
     Dates: start: 20180613, end: 20180613
  78. FLUDARABINE [Suspect]
     Active Substance: FLUDARABINE PHOSPHATE
     Dosage: 59.5 MG, UNK
     Route: 042
     Dates: start: 20180607, end: 20180607
  79. FUROSEMIDE. [Concomitant]
     Active Substance: FUROSEMIDE
     Dosage: 20 MG, QD
     Route: 042
     Dates: start: 20180618, end: 20180618
  80. FUROSEMIDE. [Concomitant]
     Active Substance: FUROSEMIDE
     Dosage: 40 MG/H, TID
     Route: 042
     Dates: start: 20180623, end: 20180623
  81. ACETAMINOPHEN. [Concomitant]
     Active Substance: ACETAMINOPHEN
     Indication: PRODUCT USED FOR UNKNOWN INDICATION
     Dosage: 1 G, PRN
     Route: 048
     Dates: start: 20150101, end: 20180604
  82. MORPHINE [Concomitant]
     Active Substance: MORPHINE
     Dosage: 8 MG, QD
     Route: 048
     Dates: start: 20180623, end: 20180623
  83. MORPHINE [Concomitant]
     Active Substance: MORPHINE
     Dosage: 8 MG, QD
     Route: 048
     Dates: start: 20180624, end: 20180624
  84. MORPHINE [Concomitant]
     Active Substance: MORPHINE
     Dosage: 9 MG, 5 TIMES A DAY
     Route: 058
     Dates: start: 20180712, end: 20180712
  85. MORPHINE [Concomitant]
     Active Substance: MORPHINE
     Dosage: 20 MG, QD
     Route: 048
     Dates: start: 20180712, end: 20180712
  86. MORPHINE [Concomitant]
     Active Substance: MORPHINE
     Dosage: 40 MG, QD
     Route: 048
     Dates: start: 20180713, end: 20180713
  87. POTASSIUM [Concomitant]
     Active Substance: POTASSIUM
     Indication: PRODUCT USED FOR UNKNOWN INDICATION
     Dosage: 1 DF, TID
     Route: 048
     Dates: start: 20180611, end: 20180611
  88. VALACICLOVIR [Concomitant]
     Active Substance: VALACYCLOVIR HYDROCHLORIDE
     Dosage: 500 MG, QD
     Route: 048
     Dates: start: 20180705, end: 20180705
  89. MACROGOL [Concomitant]
     Active Substance: POLYETHYLENE GLYCOLS
     Dosage: 1 U, QD
     Route: 048
     Dates: start: 20180705, end: 20180705
  90. MACROGOL [Concomitant]
     Active Substance: POLYETHYLENE GLYCOLS
     Dosage: 1 U, QD
     Route: 048
     Dates: start: 20180715, end: 20180715
  91. FLUOXETINE [Concomitant]
     Active Substance: FLUOXETINE HYDROCHLORIDE
     Indication: PRODUCT USED FOR UNKNOWN INDICATION
     Dosage: 20 MG, QD
     Route: 048
     Dates: start: 20150227, end: 20180604
  92. FLUCONAZOLE. [Concomitant]
     Active Substance: FLUCONAZOLE
     Indication: PRODUCT USED FOR UNKNOWN INDICATION
     Dosage: 400 MG, QD
     Route: 048
     Dates: start: 20180610, end: 20180623
  93. PETHIDINE [Concomitant]
     Active Substance: MEPERIDINE
     Dosage: 25 MG, QD
     Route: 042
     Dates: start: 20180613, end: 20180613
  94. DOSPIR [Concomitant]
     Active Substance: ALBUTEROL SULFATE\IPRATROPIUM BROMIDE
     Indication: PRODUCT USED FOR UNKNOWN INDICATION
     Dosage: 2 OT, QD (PUFF)
     Route: 055
     Dates: start: 20180612, end: 20180612
  95. TRAMETINIB [Suspect]
     Active Substance: TRAMETINIB
     Indication: METASTATIC MALIGNANT MELANOMA
     Dosage: 02 MG, QD
     Route: 048
     Dates: start: 20171012, end: 20180520
  96. FLUDARABINE [Suspect]
     Active Substance: FLUDARABINE PHOSPHATE
     Dosage: 59.5 MG, UNK
     Route: 042
     Dates: start: 20180609, end: 20180609
  97. FUROSEMIDE. [Concomitant]
     Active Substance: FUROSEMIDE
     Dosage: 40 MG/H, BID
     Route: 042
     Dates: start: 20180619, end: 20180620
  98. CALCIUM GLUCONATE. [Concomitant]
     Active Substance: CALCIUM GLUCONATE
     Dosage: 2.25 MMOL, TID
     Route: 042
     Dates: start: 20180606, end: 20180606
  99. MORPHINE [Concomitant]
     Active Substance: MORPHINE
     Dosage: 8 MG, BID
     Route: 048
     Dates: start: 20180607, end: 20180609
  100. MORPHINE [Concomitant]
     Active Substance: MORPHINE
     Dosage: 9 MG, 5QD
     Route: 058
     Dates: start: 20180707, end: 20180708
  101. POTASSIUM [Concomitant]
     Active Substance: POTASSIUM
     Dosage: 1 DF, TID
     Route: 048
     Dates: start: 20180617, end: 20180618
  102. CEFEPIME [Concomitant]
     Active Substance: CEFEPIME HYDROCHLORIDE
     Indication: PRODUCT USED FOR UNKNOWN INDICATION
     Dosage: 2 G, QD
     Route: 042
     Dates: start: 20180612, end: 20180612
  103. OXYCODONE [Concomitant]
     Active Substance: OXYCODONE
     Dosage: 7 MG, PRN
     Route: 048
     Dates: start: 20180629
  104. PREGABALIN. [Concomitant]
     Active Substance: PREGABALIN
     Dosage: 100 MG, QD
     Route: 048
     Dates: start: 20180713, end: 20180713
  105. VALACICLOVIR [Concomitant]
     Active Substance: VALACYCLOVIR HYDROCHLORIDE
     Indication: PRODUCT USED FOR UNKNOWN INDICATION
     Dosage: 500 MG, BID
     Route: 048
     Dates: start: 20180610, end: 20180630
  106. MACROGOL [Concomitant]
     Active Substance: POLYETHYLENE GLYCOLS
     Dosage: 1 U, QD
     Route: 048
     Dates: start: 20180706, end: 20180706
  107. ENOXAPARIN SODIUM. [Concomitant]
     Active Substance: ENOXAPARIN SODIUM
     Dosage: 40 MG, QD
     Route: 058
     Dates: start: 20180711
  108. GLYCEROL [Concomitant]
     Active Substance: GLYCERIN
     Indication: PRODUCT USED FOR UNKNOWN INDICATION
     Dosage: 1 U, QD
     Route: 054
     Dates: start: 20180708, end: 20180708
  109. CLARITHROMYCIN. [Concomitant]
     Active Substance: CLARITHROMYCIN
     Indication: PRODUCT USED FOR UNKNOWN INDICATION
     Dosage: 500 MG, QD
     Route: 048
     Dates: start: 20180612, end: 20180612
  110. FUROSEMIDE. [Concomitant]
     Active Substance: FUROSEMIDE
     Indication: PRODUCT USED FOR UNKNOWN INDICATION
     Dosage: 40 MG, BID
     Route: 042
     Dates: start: 20180606, end: 20180606
  111. FUROSEMIDE. [Concomitant]
     Active Substance: FUROSEMIDE
     Dosage: 40 MG/H, TID
     Route: 042
     Dates: start: 20180621, end: 20180621
  112. CALCIUM [Concomitant]
     Active Substance: CALCIUM
     Dosage: 1000 MG, QD
     Route: 048
     Dates: start: 20180619, end: 20180625
  113. ACETAMINOPHEN. [Concomitant]
     Active Substance: ACETAMINOPHEN
     Dosage: 1000 MG, TID
     Route: 048
     Dates: start: 20180615, end: 20180616
  114. ACETAMINOPHEN. [Concomitant]
     Active Substance: ACETAMINOPHEN
     Dosage: 1000 MG, QD
     Route: 048
     Dates: start: 20180624, end: 20180624
  115. MORPHINE [Concomitant]
     Active Substance: MORPHINE
     Dosage: 8 MG, BID
     Route: 048
     Dates: start: 20180618, end: 20180618
  116. MORPHINE [Concomitant]
     Active Substance: MORPHINE
     Dosage: 8 MG, QD
     Route: 048
     Dates: start: 20180620, end: 20180620
  117. MORPHINE [Concomitant]
     Active Substance: MORPHINE
     Dosage: 9 MG, 5QD
     Route: 058
     Dates: start: 20180705, end: 20180706
  118. POTASSIUM [Concomitant]
     Active Substance: POTASSIUM
     Dosage: 1 DF, TID
     Route: 048
     Dates: start: 20180620, end: 20180623
  119. CEFEPIME [Concomitant]
     Active Substance: CEFEPIME HYDROCHLORIDE
     Dosage: 2 G, BID
     Route: 042
     Dates: start: 20180615, end: 20180617
  120. DOMPERIDONE [Concomitant]
     Active Substance: DOMPERIDONE
     Indication: PRODUCT USED FOR UNKNOWN INDICATION
     Dosage: 10 MG, QD
     Route: 048
     Dates: start: 20180621, end: 20180621
  121. TORASEMIDE [Concomitant]
     Active Substance: TORSEMIDE
     Dosage: 20 MG, QD
     Route: 048
     Dates: start: 20180624, end: 20180626
  122. VALACICLOVIR [Concomitant]
     Active Substance: VALACYCLOVIR HYDROCHLORIDE
     Dosage: 500 MG, QD
     Route: 048
     Dates: start: 20180701, end: 20180701
  123. MACROGOL [Concomitant]
     Active Substance: POLYETHYLENE GLYCOLS
     Dosage: 1 U, BID
     Route: 048
     Dates: start: 20180712, end: 20180714
  124. CLYSSIE [Concomitant]
     Indication: PRODUCT USED FOR UNKNOWN INDICATION
     Dosage: 1 U, QD
     Route: 054
     Dates: start: 20180702, end: 20180702
  125. CLEMASTINE [Concomitant]
     Active Substance: CLEMASTINE
     Indication: PRODUCT USED FOR UNKNOWN INDICATION
     Dosage: 2 MG, QD
     Route: 042
     Dates: start: 20180704, end: 20180707
  126. DABRAFENIB [Suspect]
     Active Substance: DABRAFENIB
     Indication: MALIGNANT MELANOMA
     Dosage: 75 MG, BID
     Route: 048
     Dates: start: 20171012, end: 20180601
  127. FUROSEMIDE. [Concomitant]
     Active Substance: FUROSEMIDE
     Dosage: 40 MG, QD
     Route: 042
     Dates: start: 20180607, end: 20180607
  128. CALCIUM GLUCONATE. [Concomitant]
     Active Substance: CALCIUM GLUCONATE
     Dosage: 2.25 MMOL, QD
     Route: 042
     Dates: start: 20180609, end: 20180609
  129. MORPHINE [Concomitant]
     Active Substance: MORPHINE
     Dosage: 8 MG, TID
     Route: 048
     Dates: start: 20180618, end: 20180618
  130. MORPHINE [Concomitant]
     Active Substance: MORPHINE
     Dosage: 9 MG, 8QD
     Route: 058
     Dates: start: 20180702, end: 20180702
  131. MORPHINE [Concomitant]
     Active Substance: MORPHINE
     Dosage: 9 MG, 6 TIMES A DAY
     Route: 058
     Dates: start: 20180710, end: 20180711
  132. CEFEPIME [Concomitant]
     Active Substance: CEFEPIME HYDROCHLORIDE
     Dosage: 2 G, TID
     Route: 042
     Dates: start: 19780613, end: 20180614
  133. CEFEPIME [Concomitant]
     Active Substance: CEFEPIME HYDROCHLORIDE
     Dosage: 2 G, QD
     Route: 042
     Dates: start: 20180624, end: 20180624
  134. OXYCODONE [Concomitant]
     Active Substance: OXYCODONE
     Indication: PRODUCT USED FOR UNKNOWN INDICATION
     Dosage: 5 MG, PRN
     Route: 048
     Dates: start: 20180628, end: 20180629
  135. VALACICLOVIR [Concomitant]
     Active Substance: VALACYCLOVIR HYDROCHLORIDE
     Dosage: 500 MG, BID
     Route: 048
     Dates: start: 20180706
  136. FLUCLOXACILLIN [Concomitant]
     Active Substance: FLUCLOXACILLIN
     Dosage: 2000 MG, Q4H
     Route: 042
     Dates: start: 20180610, end: 20180611
  137. POTASSIUM CHLORIDE. [Concomitant]
     Active Substance: POTASSIUM CHLORIDE
     Dosage: 20 MMOL, BID
     Route: 042
     Dates: start: 20180612, end: 20180612
  138. PETHIDINE [Concomitant]
     Active Substance: MEPERIDINE
     Indication: PRODUCT USED FOR UNKNOWN INDICATION
     Dosage: 50 MG, QD
     Route: 042
     Dates: start: 20180612, end: 20180613

REACTIONS (7)
  - Myalgia [Not Recovered/Not Resolved]
  - Albumin CSF increased [Unknown]
  - Back pain [Recovering/Resolving]
  - Abdominal pain upper [Unknown]
  - CSF protein increased [Unknown]
  - Paraesthesia [Unknown]
  - Guillain-Barre syndrome [Not Recovered/Not Resolved]

NARRATIVE: CASE EVENT DATE: 20180618
